FAERS Safety Report 21795444 (Version 1)
Quarter: 2022Q4

REPORT INFORMATION
  Report Type: Spontaneous
  Country: US (occurrence: None)
  Receive Date: 20221228
  Receipt Date: 20221228
  Transmission Date: 20230113
  Serious: No
  Sender: FDA-Public Use
  Company Number: None

PATIENT
  Age: 73 Year
  Sex: Female
  Weight: 76.66 kg

DRUGS (13)
  1. ORENCIA [Suspect]
     Active Substance: ABATACEPT
     Indication: Rheumatoid arthritis
     Dosage: FREQUENCY : WEEKLY;?
     Route: 058
  2. AMBIEN [Concomitant]
     Active Substance: ZOLPIDEM TARTRATE
  3. COLACE [Concomitant]
     Active Substance: DOCUSATE SODIUM
  4. CYCLOBENZAPRINE [Concomitant]
     Active Substance: CYCLOBENZAPRINE
  5. LIPITOR [Concomitant]
     Active Substance: ATORVASTATIN CALCIUM
  6. MYRBETRIQ [Concomitant]
     Active Substance: MIRABEGRON
  7. POTASSIUM CHLORIDE [Concomitant]
     Active Substance: POTASSIUM CHLORIDE
  8. PRILOSEC [Concomitant]
     Active Substance: OMEPRAZOLE MAGNESIUM
  9. PROAIR HFA [Concomitant]
     Active Substance: ALBUTEROL SULFATE
  10. SKELAXIN [Concomitant]
     Active Substance: METAXALONE
  11. SYMBICORT [Concomitant]
     Active Substance: BUDESONIDE\FORMOTEROL FUMARATE DIHYDRATE
  12. SYNTHROID [Concomitant]
     Active Substance: LEVOTHYROXINE SODIUM
  13. VITAMIN D3 [Concomitant]
     Active Substance: CHOLECALCIFEROL

REACTIONS (1)
  - SARS-CoV-2 test positive [None]

NARRATIVE: CASE EVENT DATE: 20221225
